FAERS Safety Report 17204416 (Version 2)
Quarter: 2020Q1

REPORT INFORMATION
  Report Type: Spontaneous
  Country: KR (occurrence: KR)
  Receive Date: 20191226
  Receipt Date: 20200102
  Transmission Date: 20200409
  Serious: No
  Sender: FDA-Public Use
  Company Number: KR-BAYER-2019-234509

PATIENT
  Sex: Female

DRUGS (1)
  1. YAZ [Suspect]
     Active Substance: DROSPIRENONE\ETHINYL ESTRADIOL
     Indication: CONTRACEPTION
     Dosage: UNK, QD
     Route: 048

REACTIONS (1)
  - Inappropriate schedule of product administration [None]
